FAERS Safety Report 6440794-7 (Version None)
Quarter: 2009Q4

REPORT INFORMATION
  Report Type: 
  Country: None (occurrence: None)
  Receive Date: 20091116
  Receipt Date: 20091104
  Transmission Date: 20100525
  Serious: Yes (Hospitalization)
  Sender: FDA-Public Use
  Company Number: DE-JNJFOC-20091101074

PATIENT
  Age: 49 Year
  Sex: Female

DRUGS (7)
  1. INVEGA [Suspect]
     Route: 048
     Dates: start: 20080516
  2. INVEGA [Suspect]
     Indication: DRUG USE FOR UNKNOWN INDICATION
     Route: 048
     Dates: start: 20080516
  3. DOXEPIN HCL [Interacting]
     Route: 065
  4. DOXEPIN HCL [Interacting]
     Indication: DRUG USE FOR UNKNOWN INDICATION
     Route: 065
  5. CELLCEPT [Concomitant]
     Route: 065
  6. RAMIPRIL [Concomitant]
     Route: 065
  7. VENLAFAXINE HCL [Concomitant]
     Route: 065
     Dates: start: 20080517, end: 20080519

REACTIONS (2)
  - DRUG INTERACTION [None]
  - WEIGHT INCREASED [None]
